FAERS Safety Report 22044517 (Version 1)
Quarter: 2023Q1

REPORT INFORMATION
  Report Type: Spontaneous
  Country: US (occurrence: US)
  Receive Date: 20230228
  Receipt Date: 20230228
  Transmission Date: 20230418
  Serious: No
  Sender: FDA-Public Use
  Company Number: US-BRISTOL-MYERS SQUIBB COMPANY-2023-028051

PATIENT
  Sex: Male

DRUGS (1)
  1. ELIQUIS [Suspect]
     Active Substance: APIXABAN
     Indication: Thrombosis
     Dosage: DOSE : 2.5 MG;     FREQ : BID
     Route: 048

REACTIONS (2)
  - Limb injury [Unknown]
  - Spinal deformity [Unknown]

NARRATIVE: CASE EVENT DATE: 20220501
